FAERS Safety Report 23301775 (Version 1)
Quarter: 2023Q4

REPORT INFORMATION
  Report Type: Spontaneous
  Country: US (occurrence: US)
  Receive Date: 20231215
  Receipt Date: 20231215
  Transmission Date: 20240110
  Serious: No
  Sender: FDA-Public Use
  Company Number: US-SA-SAC20231212001113

PATIENT
  Age: 15 Year
  Sex: Female

DRUGS (1)
  1. DUPIXENT [Suspect]
     Active Substance: DUPILUMAB
     Indication: Dermatitis atopic
     Dosage: 200MG EVERY 14 DAYS
     Route: 058
     Dates: start: 202311

REACTIONS (2)
  - Injection site swelling [Unknown]
  - Injection site erythema [Unknown]

NARRATIVE: CASE EVENT DATE: 20230101
